FAERS Safety Report 5967585-5 (Version None)
Quarter: 2008Q4

REPORT INFORMATION
  Report Type: 
  Country: None (occurrence: None)
  Receive Date: 20081125
  Receipt Date: 20081113
  Transmission Date: 20090506
  Serious: Yes (Hospitalization)
  Sender: FDA-Public Use
  Company Number: DE-JNJCH-2008055277

PATIENT
  Age: 18 Year
  Sex: Male

DRUGS (2)
  1. CETIRIZINE HYDROCHLORIDE [Suspect]
     Indication: DRUG USE FOR UNKNOWN INDICATION
     Dosage: TEXT:50 MG
     Route: 048
     Dates: start: 20081001, end: 20081001
  2. CELESTAMINE TAB [Suspect]
     Dosage: TEXT:15 MG
     Route: 048
     Dates: start: 20081001, end: 20081001

REACTIONS (1)
  - ACCIDENTAL OVERDOSE [None]
